FAERS Safety Report 7078246-6 (Version None)
Quarter: 2010Q4

REPORT INFORMATION
  Report Type: 
  Country: None (occurrence: None)
  Receive Date: 20101102
  Receipt Date: 20101025
  Transmission Date: 20110411
  Serious: Yes (Hospitalization)
  Sender: FDA-Public Use
  Company Number: US-CELGENEUS-163-50794-10102526

PATIENT
  Age: 42 Year
  Sex: Male
  Weight: 73.9 kg

DRUGS (14)
  1. VIDAZA [Suspect]
     Route: 065
     Dates: start: 20101015, end: 20101019
  2. CYCLOPHOSPHAMIDE [Suspect]
     Route: 065
     Dates: start: 20101020
  3. ALLOPURINOL [Concomitant]
     Route: 065
  4. ASPIRIN [Concomitant]
     Route: 065
  5. CAPTOPRIL [Concomitant]
     Route: 065
  6. COLACE [Concomitant]
     Route: 065
  7. FAMCYCLOVIR [Concomitant]
     Route: 065
  8. IRON SULFATETHIAMIN COMPOUND TAB [Concomitant]
     Route: 065
  9. METHYLPREDNISOLONE ACETATE [Concomitant]
     Route: 065
  10. NITROGLYCERIN [Concomitant]
     Route: 065
  11. PROTONIX [Concomitant]
     Route: 065
  12. PLAVIX [Concomitant]
     Route: 065
  13. PHENERGAN [Concomitant]
     Route: 065
  14. OXYCODONE [Concomitant]
     Route: 065

REACTIONS (2)
  - CHRONIC OBSTRUCTIVE PULMONARY DISEASE [None]
  - PNEUMONIA [None]
